FAERS Safety Report 10432195 (Version 1)
Quarter: 2014Q3

REPORT INFORMATION
  Report Type: Report from Study
  Country: GB (occurrence: GB)
  Receive Date: 20140905
  Receipt Date: 20140905
  Transmission Date: 20150326
  Serious: Yes (Hospitalization, Other)
  Sender: FDA-Public Use
  Company Number: GB-ACCORD-025617

PATIENT
  Age: 51 Year
  Sex: Female

DRUGS (10)
  1. CARBOPLATIN. [Suspect]
     Active Substance: CARBOPLATIN
     Indication: HER-2 POSITIVE BREAST CANCER
     Dosage: ALSO RECEIVED 630 MG ON 01-NOV-2013 AND 22-NOV-2013.
     Route: 065
     Dates: start: 20131011, end: 20131011
  2. DEXAMETHASONE. [Concomitant]
     Active Substance: DEXAMETHASONE
     Dates: start: 20130930, end: 20131002
  3. DOCETAXEL [Suspect]
     Active Substance: DOCETAXEL
     Indication: HER-2 POSITIVE BREAST CANCER
     Dosage: ALSO RECEIVED 120 MG ON 01-NOV-2013 AND 22-NOV-2013.
     Route: 065
     Dates: start: 20131011, end: 20131011
  4. TRASTUZUMAB [Suspect]
     Active Substance: TRASTUZUMAB
     Indication: HER-2 POSITIVE BREAST CANCER
     Dosage: 600 MG ON DAY 1
     Route: 058
     Dates: start: 20130809
  5. ZARZIO [Concomitant]
     Active Substance: FILGRASTIM
     Dates: start: 20131004, end: 20131012
  6. RANITIDINE [Concomitant]
     Active Substance: RANITIDINE\RANITIDINE HYDROCHLORIDE
     Dates: start: 20131001, end: 20131001
  7. CETIRIZINE [Concomitant]
     Active Substance: CETIRIZINE HYDROCHLORIDE
     Dates: start: 20131001, end: 20131003
  8. COCODAMOL [Concomitant]
     Active Substance: ACETAMINOPHEN\CODEINE PHOSPHATE
     Dates: start: 20130619
  9. ONDANSETRON [Concomitant]
     Active Substance: ONDANSETRON
     Dates: start: 20130929, end: 20131001
  10. CHLORPHENAMINE [Concomitant]
     Active Substance: CHLORPHENIRAMINE MALEATE
     Dates: start: 20131001, end: 20131001

REACTIONS (5)
  - Erythema [Unknown]
  - Malaise [Unknown]
  - Off label use [Unknown]
  - Mastitis [Recovered/Resolved]
  - Back pain [Unknown]

NARRATIVE: CASE EVENT DATE: 20131023
